FAERS Safety Report 7309171-0 (Version None)
Quarter: 2011Q1

REPORT INFORMATION
  Report Type: 
  Country: None (occurrence: None)
  Receive Date: 20110223
  Receipt Date: 20110211
  Transmission Date: 20110831
  Serious: No
  Sender: FDA-Public Use
  Company Number: US-B.I. PHARMACEUTICALS,INC./RIDGEFIELD-2011-BP-03363BP

PATIENT
  Age: 70 Year
  Sex: Female

DRUGS (5)
  1. SYNTHROID [Concomitant]
     Indication: THYROID DISORDER
     Route: 048
  2. GINGER ROD [Concomitant]
     Indication: ANALGESIC INTERVENTION SUPPORTIVE THERAPY
     Dosage: 2200 MG
     Route: 048
  3. VITAMIN D [Concomitant]
     Indication: BONE DISORDER
     Route: 048
     Dates: start: 20080101
  4. PRILOSEC [Concomitant]
     Indication: GASTROOESOPHAGEAL REFLUX DISEASE
     Dosage: 20 MG
     Route: 048
     Dates: start: 20000101
  5. PRADAXA [Suspect]
     Indication: ATRIAL FIBRILLATION
     Dosage: 300 MG
     Route: 048
     Dates: start: 20110209

REACTIONS (3)
  - ABDOMINAL PAIN UPPER [None]
  - CHEST PAIN [None]
  - BURNING SENSATION [None]
